FAERS Safety Report 19666315 (Version 1)
Quarter: 2021Q3

REPORT INFORMATION
  Report Type: Spontaneous
  Country: US (occurrence: US)
  Receive Date: 20210805
  Receipt Date: 20210805
  Transmission Date: 20211014
  Serious: No
  Sender: FDA-Public Use
  Company Number: None

PATIENT
  Sex: Female

DRUGS (2)
  1. DEFEROXAMINE MESYLATE SDV [Suspect]
     Active Substance: DEFEROXAMINE MESYLATE
     Indication: HAEMOCHROMATOSIS
     Dosage: ?          OTHER FREQUENCY:DAILY;?
     Route: 058
     Dates: start: 202106
  2. IV SCIG 26G 9MM HIGH FLO [Suspect]
     Active Substance: HUMAN IMMUNOGLOBULIN G
     Indication: HAEMOCHROMATOSIS
     Dosage: ?          OTHER FREQUENCY:DAILY ;?
     Route: 058
     Dates: start: 202106

REACTIONS (2)
  - Skin irritation [None]
  - Needle issue [None]
